FAERS Safety Report 6029876-1 (Version None)
Quarter: 2009Q1

REPORT INFORMATION
  Report Type: 
  Country: None (occurrence: None)
  Receive Date: 20090105
  Receipt Date: 20090105
  Transmission Date: 20090719
  Serious: Yes (Death, Life-Threatening, Hospitalization)
  Sender: FDA-Public Use
  Company Number: None

PATIENT
  Age: 60 Year
  Sex: Male
  Weight: 51.4 kg

DRUGS (1)
  1. DOCETAXEL [Suspect]
     Indication: OROPHARYNGEAL CANCER STAGE UNSPECIFIED
     Dosage: 120 MG OTHER IV
     Route: 042
     Dates: start: 20080709, end: 20080729

REACTIONS (8)
  - ACUTE INTERSTITIAL PNEUMONITIS [None]
  - ACUTE RESPIRATORY DISTRESS SYNDROME [None]
  - ASPIRATION [None]
  - HYPOTENSION [None]
  - RESPIRATORY DEPRESSION [None]
  - SEPSIS [None]
  - TACHYPNOEA [None]
  - UNRESPONSIVE TO STIMULI [None]
